FAERS Safety Report 9372209 (Version 2)
Quarter: 2013Q3

REPORT INFORMATION
  Report Type: Spontaneous
  Country: US (occurrence: None)
  Receive Date: 20130618
  Receipt Date: 20130717
  Transmission Date: 20140515
  Serious: Yes (Hospitalization)
  Sender: FDA-Public Use
  Company Number: 2013036425

PATIENT
  Age: 34 Year
  Sex: Female

DRUGS (1)
  1. BERINERT [Suspect]

REACTIONS (4)
  - Swollen tongue [None]
  - Abdominal pain [None]
  - Off label use [None]
  - Drug effect incomplete [None]
